FAERS Safety Report 16008277 (Version 2)
Quarter: 2019Q2

REPORT INFORMATION
  Report Type: Spontaneous
  Country: JP (occurrence: JP)
  Receive Date: 20190225
  Receipt Date: 20190403
  Transmission Date: 20190711
  Serious: Yes (Death)
  Sender: FDA-Public Use
  Company Number: JP-SUN PHARMACEUTICAL INDUSTRIES LTD-2019R1-199915

PATIENT
  Sex: Female

DRUGS (1)
  1. APRESOLINE HYDROCHLORIDE [Suspect]
     Active Substance: HYDRALAZINE HYDROCHLORIDE
     Dosage: 2.4 MG/HOUR
     Route: 048

REACTIONS (3)
  - Cerebral haemorrhage [Fatal]
  - Abdominal pain upper [Fatal]
  - Exposure during pregnancy [Unknown]
